FAERS Safety Report 24786347 (Version 1)
Quarter: 2024Q4

REPORT INFORMATION
  Report Type: Report from Study
  Country: AU (occurrence: AU)
  Receive Date: 20241230
  Receipt Date: 20241230
  Transmission Date: 20250115
  Serious: Yes (Other)
  Sender: TEIKOKU
  Company Number: None

PATIENT
  Age: 5 Decade
  Sex: Female

DRUGS (3)
  1. LIDOCAINE HYDROCHLORIDE [Suspect]
     Active Substance: LIDOCAINE HYDROCHLORIDE
     Indication: Anaesthesia procedure
     Dosage: UNK
  2. REMIFENTANIL HYDROCHLORIDE [Suspect]
     Active Substance: REMIFENTANIL HYDROCHLORIDE
     Indication: Anaesthesia procedure
     Dosage: 0.1 MILLIGRAM/KILOGRAM
  3. REMIFENTANIL HYDROCHLORIDE [Suspect]
     Active Substance: REMIFENTANIL HYDROCHLORIDE
     Dosage: 0.15 MILLIGRAM/KILOGRAM

REACTIONS (5)
  - Dystonia [Recovering/Resolving]
  - Hypercapnia [Recovering/Resolving]
  - Hypertonia [Recovering/Resolving]
  - Hypoventilation [Recovering/Resolving]
  - Unresponsive to stimuli [Recovering/Resolving]
